FAERS Safety Report 6712904-5 (Version None)
Quarter: 2010Q2

REPORT INFORMATION
  Report Type: 
  Country: None (occurrence: None)
  Receive Date: 20100504
  Receipt Date: 20100504
  Transmission Date: 20101027
  Serious: Yes (Other)
  Sender: FDA-Public Use
  Company Number: None

PATIENT
  Sex: Male
  Weight: 80.9 kg

DRUGS (1)
  1. ETANERCEPT [Suspect]
     Indication: ANKYLOSING SPONDYLITIS
     Dosage: 50MG QWEEK IM
     Route: 030
     Dates: start: 20090325

REACTIONS (4)
  - ACID FAST BACILLI INFECTION [None]
  - ATYPICAL MYCOBACTERIUM TEST POSITIVE [None]
  - PAIN OF SKIN [None]
  - SKIN LESION [None]
